FAERS Safety Report 10264882 (Version 1)
Quarter: 2014Q2

REPORT INFORMATION
  Report Type: Report from Study
  Country: US (occurrence: US)
  Receive Date: 20140627
  Receipt Date: 20140627
  Transmission Date: 20141212
  Serious: Yes (Other)
  Sender: FDA-Public Use
  Company Number: US-JNJFOC-20140615693

PATIENT
  Sex: Male
  Weight: 77.11 kg

DRUGS (5)
  1. REMICADE [Suspect]
     Indication: RHEUMATOID ARTHRITIS
     Route: 042
     Dates: start: 2010, end: 2014
  2. CARBIDOPA/LEVODOPA [Concomitant]
     Indication: PARKINSON^S DISEASE
     Route: 065
     Dates: start: 2013
  3. COUMADIN [Concomitant]
     Route: 048
     Dates: start: 1982
  4. LISINOPRIL [Concomitant]
     Indication: HYPERTENSION
     Route: 048
  5. ENTACAPONE [Concomitant]
     Indication: TREMOR
     Route: 048
     Dates: start: 2013

REACTIONS (1)
  - Prostate cancer [Not Recovered/Not Resolved]
